FAERS Safety Report 25961860 (Version 2)
Quarter: 2025Q4

REPORT INFORMATION
  Report Type: Report from Study
  Country: US (occurrence: US)
  Receive Date: 20251027
  Receipt Date: 20251031
  Transmission Date: 20260117
  Serious: Yes (Hospitalization, Other)
  Sender: ABBVIE
  Company Number: US-ABBVIE-6513311

PATIENT
  Age: 76 Year
  Sex: Female

DRUGS (1)
  1. SKYRIZI [Suspect]
     Active Substance: RISANKIZUMAB-RZAA
     Indication: Crohn^s disease
     Dosage: FORM STRENGTH: 600 MILLIGRAM, INTRAVENOUS DRIP
     Route: 042
     Dates: start: 20250929, end: 20251005

REACTIONS (6)
  - Gastrointestinal obstruction [Recovered/Resolved]
  - Neoplasm malignant [Unknown]
  - Pain [Not Recovered/Not Resolved]
  - Kidney infection [Recovered/Resolved]
  - Vomiting [Unknown]
  - Feeding disorder [Unknown]

NARRATIVE: CASE EVENT DATE: 20250101
